FAERS Safety Report 4414605-5 (Version None)
Quarter: 2004Q3

REPORT INFORMATION
  Report Type: 
  Country: None (occurrence: None)
  Receive Date: 20040729
  Receipt Date: 20040715
  Transmission Date: 20050211
  Serious: Yes (Hospitalization)
  Sender: FDA-Public Use
  Company Number: JP-JNJFOC-20040603400

PATIENT
  Age: 69 Year
  Sex: Male
  Weight: 46 kg

DRUGS (10)
  1. REMICADE [Suspect]
     Indication: RHEUMATOID ARTHRITIS
     Dosage: 1 IN 1 AS NECESSARY, INTRAVENOUS DRIP; 3 MG, INTRAVENOUS DRIP
     Route: 041
     Dates: start: 20040428, end: 20040428
  2. REMICADE [Suspect]
     Indication: RHEUMATOID ARTHRITIS
     Dosage: 1 IN 1 AS NECESSARY, INTRAVENOUS DRIP; 3 MG, INTRAVENOUS DRIP
     Route: 041
     Dates: start: 20040318
  3. REMICADE [Suspect]
     Indication: RHEUMATOID ARTHRITIS
     Dosage: 1 IN 1 AS NECESSARY, INTRAVENOUS DRIP; 3 MG, INTRAVENOUS DRIP
     Route: 041
     Dates: start: 20040401
  4. RHEUMATREX [Suspect]
     Indication: RHEUMATOID ARTHRITIS
     Dosage: 8 MG, IN 1 WEEK, ORAL; 6 MG, 1 IN 1 WEEK, ORAL
     Route: 048
     Dates: start: 20030715, end: 20031130
  5. RHEUMATREX [Suspect]
     Indication: RHEUMATOID ARTHRITIS
     Dosage: 8 MG, IN 1 WEEK, ORAL; 6 MG, 1 IN 1 WEEK, ORAL
     Route: 048
     Dates: start: 20031201
  6. PREDONIN (PREDNISOLONE) UNSPECIFIED [Suspect]
     Indication: RHEUMATOID ARTHRITIS
     Dosage: 5 MG, 1 IN 1 DAY, ORAL
     Route: 048
  7. VOLTAREN [Suspect]
     Indication: RHEUMATOID ARTHRITIS
     Dosage: 7.5 MG, 1 IN 1 DAY, ORAL
     Route: 048
  8. SOLON (SOFALCONE) TABLETS [Suspect]
     Dosage: 1 IN 1 DAY, ORAL
     Route: 048
  9. VOLTAREN (SUPPOSITORY) DICLOFENAC [Concomitant]
  10. BIOPRESS (TABLETS) PROTEIN HYDROLYSATE [Concomitant]

REACTIONS (9)
  - ANOREXIA [None]
  - C-REACTIVE PROTEIN INCREASED [None]
  - DRUG INTERACTION [None]
  - EMPYEMA [None]
  - LYMPHADENOPATHY [None]
  - PEPTOSTREPTOCOCCUS INFECTION [None]
  - PRODUCTIVE COUGH [None]
  - PULMONARY FIBROSIS [None]
  - PYOTHORAX [None]
